FAERS Safety Report 7445605-9 (Version None)
Quarter: 2011Q2

REPORT INFORMATION
  Report Type: 
  Country: None (occurrence: None)
  Receive Date: 20110429
  Receipt Date: 20110418
  Transmission Date: 20111010
  Serious: Yes (Hospitalization, Disabling)
  Sender: FDA-Public Use
  Company Number: AU-ROCHE-771810

PATIENT
  Age: 29 Year
  Sex: Male

DRUGS (4)
  1. VALPROIC ACID [Suspect]
     Dosage: OVERDOSE
     Route: 048
  2. DIAZEPAM [Suspect]
     Route: 048
  3. DIAZEPAM [Suspect]
     Indication: INSOMNIA
     Dosage: OVERDOSE
     Route: 048
  4. VALPROIC ACID [Suspect]
     Route: 048

REACTIONS (12)
  - BRAIN OEDEMA [None]
  - VOMITING [None]
  - BALANCE DISORDER [None]
  - ENCEPHALOPATHY [None]
  - OPTIC NEUROPATHY [None]
  - OVERDOSE [None]
  - CEREBRAL INFARCTION [None]
  - AGITATION [None]
  - COMA [None]
  - BRAIN HERNIATION [None]
  - HYPERAMMONAEMIA [None]
  - HEMIPARESIS [None]
